FAERS Safety Report 4740472-6 (Version None)
Quarter: 2005Q3

REPORT INFORMATION
  Report Type: 
  Country: None (occurrence: None)
  Receive Date: 20050810
  Receipt Date: 20050804
  Transmission Date: 20060218
  Serious: Yes (Hospitalization)
  Sender: FDA-Public Use
  Company Number: DE-BOEHRINGER INGELHEIM PHARMACEUTICALS, INC.-2005-DE-03070DE

PATIENT
  Sex: Female

DRUGS (4)
  1. SPIRIVA [Suspect]
  2. PANTOPRAZOLE SODIUM [Suspect]
     Route: 048
  3. TONSIPRET [Suspect]
     Route: 048
  4. THEOPHYLLINE [Suspect]
     Route: 048

REACTIONS (6)
  - CONFUSIONAL STATE [None]
  - DISORIENTATION [None]
  - DRUG ABUSER [None]
  - RESPIRATORY ALKALOSIS [None]
  - SOMNOLENCE [None]
  - SUICIDE ATTEMPT [None]
